FAERS Safety Report 25966176 (Version 1)
Quarter: 2025Q4

REPORT INFORMATION
  Report Type: Report from Study
  Country: US (occurrence: US)
  Receive Date: 20251028
  Receipt Date: 20251028
  Transmission Date: 20260118
  Serious: Yes (Other)
  Sender: SERVIER
  Company Number: US-SERVIER-S25015242

PATIENT

DRUGS (1)
  1. VORASIDENIB [Suspect]
     Active Substance: VORASIDENIB
     Indication: Brain neoplasm malignant
     Dosage: 40 MG, QD
     Route: 048

REACTIONS (5)
  - Hypertension [Recovered/Resolved]
  - Migraine [Recovered/Resolved]
  - Pyrexia [Recovered/Resolved]
  - Incision site discomfort [Recovered/Resolved]
  - Product dose omission issue [Recovered/Resolved]

NARRATIVE: CASE EVENT DATE: 20251001
